FAERS Safety Report 23346179 (Version 1)
Quarter: 2023Q4

REPORT INFORMATION
  Report Type: Spontaneous
  Country: US (occurrence: US)
  Receive Date: 20231228
  Receipt Date: 20231228
  Transmission Date: 20240110
  Serious: No
  Sender: FDA-Public Use
  Company Number: US-PFIZER INC-202300441161

PATIENT
  Age: 6 Year
  Sex: Female
  Weight: 17.687 kg

DRUGS (1)
  1. GENOTROPIN [Suspect]
     Active Substance: SOMATROPIN
     Indication: Growth hormone deficiency
     Dosage: 0.5 MG, 1X/DAY
     Dates: start: 20231020

REACTIONS (2)
  - Drug dose omission by device [Unknown]
  - Device breakage [Unknown]
